FAERS Safety Report 6113883-4 (Version None)
Quarter: 2009Q1

REPORT INFORMATION
  Report Type: 
  Country: None (occurrence: None)
  Receive Date: 20090312
  Receipt Date: 20080708
  Transmission Date: 20090719
  Serious: No
  Sender: FDA-Public Use
  Company Number: US-ABBOTT-08P-163-0461114-00

PATIENT
  Sex: Female
  Weight: 122.58 kg

DRUGS (5)
  1. LUPRON DEPOT [Suspect]
     Indication: ENDOMETRIOSIS
     Route: 030
     Dates: start: 20080423
  2. DULOXETINE HYDROCHLORIDE [Concomitant]
     Indication: PAIN
     Route: 048
  3. ZIPRASIDONE HYDROCHLORIDE [Concomitant]
     Indication: DEPRESSION
     Route: 048
  4. INTRAUTERINE CONTRACEPTIVE DEVICE [Concomitant]
     Indication: CONTRACEPTION
     Route: 067
  5. OXYCODONE HCL [Concomitant]
     Indication: PAIN
     Route: 048

REACTIONS (5)
  - ABDOMINAL PAIN UPPER [None]
  - DEPRESSION [None]
  - DIARRHOEA [None]
  - NAUSEA [None]
  - VOMITING [None]
